FAERS Safety Report 11103748 (Version 1)
Quarter: 2015Q2

REPORT INFORMATION
  Report Type: Spontaneous
  Country: None (occurrence: None)
  Receive Date: 20150508
  Receipt Date: 20150508
  Transmission Date: 20150821
  Serious: No
  Sender: FDA-Public Use
  Company Number: None

PATIENT
  Age: 57 Year
  Sex: Female
  Weight: 88.45 kg

DRUGS (5)
  1. MEGA RED [Concomitant]
  2. VIACTIVE (CALCIUM) [Concomitant]
     Active Substance: CALCIUM\VITAMIN D\VITAMIN K5
  3. LISINOPRIL. [Concomitant]
     Active Substance: LISINOPRIL
  4. AIREBORNE [Concomitant]
  5. BELVIQ [Suspect]
     Active Substance: LORCASERIN HYDROCHLORIDE
     Indication: WEIGHT CONTROL
     Route: 048
     Dates: start: 20150418, end: 20150430

REACTIONS (3)
  - Fatigue [None]
  - Feeling cold [None]
  - Bradycardia [None]

NARRATIVE: CASE EVENT DATE: 20150430
